FAERS Safety Report 12841709 (Version 1)
Quarter: 2016Q4

REPORT INFORMATION
  Report Type: Spontaneous
  Country: US (occurrence: US)
  Receive Date: 20161012
  Receipt Date: 20161012
  Transmission Date: 20170207
  Serious: No
  Sender: FDA-Public Use
  Company Number: US-TEVA-692721ACC

PATIENT
  Age: 55 Year
  Sex: Female

DRUGS (1)
  1. PARAGARD T 380A [Suspect]
     Active Substance: COPPER
     Dosage: FOR 15 YEARS

REACTIONS (2)
  - Intentional product use issue [Unknown]
  - Device breakage [Not Recovered/Not Resolved]
